FAERS Safety Report 7024675-6 (Version None)
Quarter: 2010Q4

REPORT INFORMATION
  Report Type: 
  Country: None (occurrence: None)
  Receive Date: 20101001
  Receipt Date: 20100927
  Transmission Date: 20110411
  Serious: No
  Sender: FDA-Public Use
  Company Number: US-PFIZER INC-2010123284

PATIENT
  Sex: Female
  Weight: 63.492 kg

DRUGS (3)
  1. CHANTIX [Suspect]
     Indication: SMOKING CESSATION THERAPY
     Dosage: UNK
     Route: 048
     Dates: start: 20100901
  2. INDERAL [Concomitant]
     Indication: MIGRAINE
     Dosage: UNK
  3. INDERAL [Concomitant]
     Indication: HEADACHE

REACTIONS (2)
  - BLOOD CHOLESTEROL INCREASED [None]
  - FEELING ABNORMAL [None]
